FAERS Safety Report 12186506 (Version 1)
Quarter: 2016Q1

REPORT INFORMATION
  Report Type: Other
  Country: GR (occurrence: GR)
  Receive Date: 20160317
  Receipt Date: 20160317
  Transmission Date: 20160526
  Serious: Yes (Other)
  Sender: FDA-Public Use
  Company Number: GR-HETERO LABS LTD-1049235

PATIENT
  Age: 49 Year
  Sex: Male

DRUGS (3)
  1. POLIDOCANOL W/UREA [Concomitant]
     Route: 065
  2. SILDENAFIL. [Suspect]
     Active Substance: SILDENAFIL
     Indication: APHRODISIAC THERAPY
     Route: 065
  3. CETIRIZINE [Concomitant]
     Active Substance: CETIRIZINE HYDROCHLORIDE
     Route: 065

REACTIONS (1)
  - Erythema multiforme [Recovered/Resolved]
